FAERS Safety Report 9044131 (Version 1)
Quarter: 2013Q1

REPORT INFORMATION
  Report Type: Report from Study
  Country: US (occurrence: US)
  Receive Date: 20130130
  Receipt Date: 20130130
  Transmission Date: 20140127
  Serious: No
  Sender: FDA-Public Use
  Company Number: US-ABBOTT-12P-163-0935367-00

PATIENT
  Sex: Female

DRUGS (6)
  1. HUMIRA 40 MG/0.8 ML PEN [Suspect]
     Indication: RHEUMATOID ARTHRITIS
     Dates: start: 20120410
  2. METHOTREXATE [Concomitant]
     Indication: RHEUMATOID ARTHRITIS
     Dosage: 8 PILLS EVERY FRIDAY
  3. THE OTHER BRAND OF PRILOSEC [Concomitant]
     Indication: GASTRIC DISORDER
  4. PHOSPHATE [Concomitant]
     Indication: GASTRIC DISORDER
  5. LYRICA [Concomitant]
     Indication: FIBROMYALGIA
  6. IRON AND VITAMIN D [Concomitant]
     Indication: PRODUCT USED FOR UNKNOWN INDICATION
     Dosage: DAILY; AS PRESCRIBED BY HER DOCTOR

REACTIONS (10)
  - Injection site papule [Not Recovered/Not Resolved]
  - Injection site papule [Not Recovered/Not Resolved]
  - Injection site bruising [Recovering/Resolving]
  - Injection site pain [Recovering/Resolving]
  - Injection site warmth [Unknown]
  - Injection site pruritus [Unknown]
  - Headache [Unknown]
  - Sinus headache [Unknown]
  - Injection site warmth [Not Recovered/Not Resolved]
  - Injection site pruritus [Not Recovered/Not Resolved]
